FAERS Safety Report 8608885-X (Version None)
Quarter: 2012Q3

REPORT INFORMATION
  Report Type: 
  Country: None (occurrence: None)
  Receive Date: 20120821
  Receipt Date: 20120813
  Transmission Date: 20120928
  Serious: Yes (Other)
  Sender: FDA-Public Use
  Company Number: US-ABBOTT-12P-163-0968152-00

PATIENT
  Sex: Female

DRUGS (2)
  1. LYRICA [Concomitant]
     Indication: PRODUCT USED FOR UNKNOWN INDICATION
  2. HUMIRA [Suspect]
     Indication: RHEUMATOID ARTHRITIS
     Route: 058
     Dates: start: 20120501

REACTIONS (3)
  - PHARYNGEAL OEDEMA [None]
  - SWELLING FACE [None]
  - PRURITUS [None]
